FAERS Safety Report 5952427-4 (Version None)
Quarter: 2008Q4

REPORT INFORMATION
  Report Type: 
  Country: None (occurrence: None)
  Receive Date: 20081113
  Receipt Date: 20081105
  Transmission Date: 20090506
  Serious: Yes (Hospitalization)
  Sender: FDA-Public Use
  Company Number: US-GENENTECH-271018

PATIENT
  Sex: Female
  Weight: 38.095 kg

DRUGS (2)
  1. BEVACIZUMAB [Suspect]
     Indication: BREAST CANCER
     Dosage: 390 MG/KG, UNK
     Dates: start: 20070516
  2. FULVESTRANT [Suspect]
     Indication: BREAST CANCER
     Dosage: 250 MG, UNK
     Dates: start: 20081029

REACTIONS (1)
  - CONVULSION [None]
